FAERS Safety Report 12955703 (Version 1)
Quarter: 2016Q4

REPORT INFORMATION
  Report Type: Spontaneous
  Country: US (occurrence: US)
  Receive Date: 20161117
  Receipt Date: 20161117
  Transmission Date: 20170207
  Serious: Yes (Hospitalization)
  Sender: FDA-Public Use
  Company Number: None

PATIENT
  Age: 70 Year
  Sex: Female

DRUGS (5)
  1. NYSTATIN TOPICAL [Concomitant]
  2. LETROZOLE. [Concomitant]
     Active Substance: LETROZOLE
  3. APIXABAN [Suspect]
     Active Substance: APIXABAN
     Indication: DEEP VEIN THROMBOSIS
     Route: 048
     Dates: start: 20161013, end: 20161017
  4. LOPERAMIDE [Concomitant]
     Active Substance: LOPERAMIDE
  5. TRIAMCINOLONE CREAM [Concomitant]
     Active Substance: TRIAMCINOLONE

REACTIONS (3)
  - Hypotension [None]
  - Duodenal ulcer haemorrhage [None]
  - Oesophageal irritation [None]

NARRATIVE: CASE EVENT DATE: 20161016
